FAERS Safety Report 15814268 (Version 2)
Quarter: 2019Q1

REPORT INFORMATION
  Report Type: Spontaneous
  Country: US (occurrence: US)
  Receive Date: 20190111
  Receipt Date: 20190318
  Transmission Date: 20190417
  Serious: Yes (Other)
  Sender: FDA-Public Use
  Company Number: US-TARO-2019TAR00004

PATIENT
  Age: 36 Year
  Sex: Male
  Weight: 104.31 kg

DRUGS (6)
  1. CARBAMAZEPINE TABLETS CHEWABLE USP 100MG [Suspect]
     Active Substance: CARBAMAZEPINE
     Indication: SEIZURE
     Dosage: 700 MG, 2X/DAY
     Route: 048
  2. VITAMIN D3 [Concomitant]
     Active Substance: CHOLECALCIFEROL
  3. MULTIVITAMIN [Concomitant]
     Active Substance: VITAMINS
  4. ASPIRIN. [Concomitant]
     Active Substance: ASPIRIN
  5. CALCIUM [Concomitant]
     Active Substance: CALCIUM
  6. CARBAMAZEPINE TABLETS CHEWABLE USP 100MG [Suspect]
     Active Substance: CARBAMAZEPINE
     Dosage: 500 MG, 2X/DAY
     Route: 048

REACTIONS (1)
  - Hallucination, auditory [Recovering/Resolving]

NARRATIVE: CASE EVENT DATE: 201810
